FAERS Safety Report 6863155-5 (Version None)
Quarter: 2010Q3

REPORT INFORMATION
  Report Type: 
  Country: None (occurrence: None)
  Receive Date: 20100721
  Receipt Date: 20100712
  Transmission Date: 20110219
  Serious: Yes (Other)
  Sender: FDA-Public Use
  Company Number: BR-ROCHE-712588

PATIENT
  Sex: Male
  Weight: 105.8 kg

DRUGS (7)
  1. ACTEMRA [Suspect]
     Indication: RHEUMATOID ARTHRITIS
     Dosage: FORM: INFUSION
     Route: 065
     Dates: start: 20100401, end: 20100601
  2. PREDNISONE [Concomitant]
     Dates: start: 20100101
  3. CYCLOPHOSPHAMIDE [Concomitant]
     Indication: RESPIRATORY FAILURE
     Route: 048
  4. CYCLOPHOSPHAMIDE [Concomitant]
     Route: 048
  5. OMEPRAZOLE [Concomitant]
  6. PREDSIM [Concomitant]
  7. PREDSIM [Concomitant]
     Dates: start: 20100101

REACTIONS (9)
  - ANAPHYLACTIC REACTION [None]
  - CHILLS [None]
  - CYANOSIS [None]
  - DYSPNOEA [None]
  - HAEMATURIA [None]
  - HYPERTENSION [None]
  - HYPERTHERMIA [None]
  - SINUS TACHYCARDIA [None]
  - TREMOR [None]
